FAERS Safety Report 9617704 (Version 1)
Quarter: 2013Q4

REPORT INFORMATION
  Report Type: Spontaneous
  Country: IT (occurrence: IT)
  Receive Date: 20131011
  Receipt Date: 20131011
  Transmission Date: 20140711
  Serious: Yes (Hospitalization, Other)
  Sender: FDA-Public Use
  Company Number: IT-WATSON-2013-17589

PATIENT
  Age: 57 Year
  Sex: Male

DRUGS (2)
  1. PREDNISONE (UNKNOWN) [Suspect]
     Indication: IMMUNOSUPPRESSION
     Dosage: 100 MG, DAILY
     Route: 065
  2. CYCLOPHOSPHAMIDE [Concomitant]
     Indication: PRODUCT USED FOR UNKNOWN INDICATION
     Dosage: 2 MG/KG, DAILY
     Route: 065

REACTIONS (1)
  - Nocardiosis [Recovered/Resolved]
